FAERS Safety Report 7801441-2 (Version None)
Quarter: 2011Q4

REPORT INFORMATION
  Report Type: 
  Country: None (occurrence: None)
  Receive Date: 20111006
  Receipt Date: 20111006
  Transmission Date: 20120403
  Serious: Yes (Hospitalization)
  Sender: FDA-Public Use
  Company Number: None

PATIENT
  Age: 82 Year
  Sex: Female
  Weight: 77.3 kg

DRUGS (13)
  1. PLAVIX [Suspect]
     Indication: CORONARY ARTERY DISEASE
     Dosage: 75MG DAILY PO CHRONIC
     Route: 048
  2. FERROUS SULFATE TAB [Concomitant]
  3. PROTONIX [Concomitant]
  4. CIPROFLOXACIN [Concomitant]
  5. POTASSIUM CHLORIDE [Concomitant]
  6. CALCIUM + D [Concomitant]
  7. APAP TAB [Concomitant]
  8. VIT B12 [Concomitant]
  9. COREG [Concomitant]
  10. AVAPRO [Concomitant]
  11. DOCUSATE [Concomitant]
  12. MECLIZINE [Concomitant]
  13. CRESTOR [Concomitant]

REACTIONS (3)
  - UPPER GASTROINTESTINAL HAEMORRHAGE [None]
  - ANAEMIA [None]
  - GASTRITIS [None]
